FAERS Safety Report 18266916 (Version 1)
Quarter: 2020Q3

REPORT INFORMATION
  Report Type: Spontaneous
  Country: US (occurrence: US)
  Receive Date: 20200914
  Receipt Date: 20200914
  Transmission Date: 20201103
  Serious: Yes (Other)
  Sender: FDA-Public Use
  Company Number: None

PATIENT
  Age: 52 Year
  Sex: Male
  Weight: 99.45 kg

DRUGS (3)
  1. CEQUA [Suspect]
     Active Substance: CYCLOSPORINE
     Indication: DRY EYE
     Dosage: ?          QUANTITY:1 DROP(S);?
     Route: 047
     Dates: start: 20200831, end: 20200904
  2. FISH OIL SUPPLEMENT [Concomitant]
     Active Substance: FISH OIL
  3. ONE A DAY MULTI VITAMEN [Concomitant]

REACTIONS (6)
  - Eye irritation [None]
  - Lacrimation increased [None]
  - Vitreous floaters [None]
  - Ocular discomfort [None]
  - Swelling of eyelid [None]
  - Chalazion [None]

NARRATIVE: CASE EVENT DATE: 20200905
